FAERS Safety Report 13596969 (Version 2)
Quarter: 2017Q2

REPORT INFORMATION
  Report Type: Report from Study
  Country: US (occurrence: US)
  Receive Date: 20170531
  Receipt Date: 20170619
  Transmission Date: 20170830
  Serious: Yes (Death, Hospitalization, Other)
  Sender: FDA-Public Use
  Company Number: US-ROCHE-1933464

PATIENT
  Age: 82 Year
  Sex: Female
  Weight: 50.85 kg

DRUGS (15)
  1. COTELLIC [Suspect]
     Active Substance: COBIMETINIB
     Indication: ACUTE MYELOID LEUKAEMIA
     Dosage: FOR 1ST 3 WEEKS EACH CYCLE ;ONGOING: NO
     Route: 065
     Dates: start: 20170310, end: 20170331
  2. COTELLIC [Suspect]
     Active Substance: COBIMETINIB
     Dosage: YES
     Route: 065
     Dates: start: 20170427, end: 20170508
  3. LOPERAMIDE [Concomitant]
     Active Substance: LOPERAMIDE
     Indication: DIARRHOEA
     Dosage: YES
     Route: 048
     Dates: start: 20170324
  4. VENCLEXTA [Suspect]
     Active Substance: VENETOCLAX
     Indication: ACUTE MYELOID LEUKAEMIA
     Dosage: NO
     Route: 048
     Dates: start: 20170310, end: 20170323
  5. VENCLEXTA [Suspect]
     Active Substance: VENETOCLAX
     Dosage: NO
     Route: 048
     Dates: start: 20170329, end: 20170330
  6. VENCLEXTA [Suspect]
     Active Substance: VENETOCLAX
     Dosage: ONGOING: NO
     Route: 048
     Dates: start: 20170427
  7. COTELLIC [Suspect]
     Active Substance: COBIMETINIB
     Dosage: DROPPED DOSE RT DIARRHEA ;ONGOING: NO
     Route: 065
     Dates: start: 20170331, end: 20170410
  8. COTELLIC [Suspect]
     Active Substance: COBIMETINIB
     Dosage: NO
     Route: 065
     Dates: start: 20170411, end: 20170426
  9. ONDANSETRAN [Concomitant]
     Active Substance: ONDANSETRON HYDROCHLORIDE
     Indication: NAUSEA
     Dosage: AS NEEDED FOR VOMITING ;ONGOING: NO
     Route: 048
  10. VENCLEXTA [Suspect]
     Active Substance: VENETOCLAX
     Dosage: NO
     Route: 048
     Dates: start: 20170325, end: 20170326
  11. VENCLEXTA [Suspect]
     Active Substance: VENETOCLAX
     Dosage: NO
     Route: 048
     Dates: start: 20170327, end: 20170327
  12. VENCLEXTA [Suspect]
     Active Substance: VENETOCLAX
     Dosage: NO
     Route: 048
     Dates: start: 20170331, end: 20170424
  13. DIPHENOXYLATE HCL/ATROPINE [Concomitant]
     Indication: DIARRHOEA
     Dosage: YES
     Route: 048
     Dates: start: 20170324
  14. ONDANSETRAN [Concomitant]
     Active Substance: ONDANSETRON HYDROCHLORIDE
     Indication: VOMITING
  15. DACOGEN [Concomitant]
     Active Substance: DECITABINE
     Indication: ACUTE LEUKAEMIA
     Dosage: 20 MG PER METER SQUARED FOR 8 DAYS
     Route: 042
     Dates: start: 20170518

REACTIONS (20)
  - Decreased appetite [Not Recovered/Not Resolved]
  - White blood cell count abnormal [Unknown]
  - Off label use [Unknown]
  - Respiratory arrest [Fatal]
  - Vomiting [Not Recovered/Not Resolved]
  - Anxiety [Not Recovered/Not Resolved]
  - Pharyngeal injury [Unknown]
  - Haemoglobin abnormal [Unknown]
  - Impaired gastric emptying [Not Recovered/Not Resolved]
  - Weight decreased [Not Recovered/Not Resolved]
  - Depression [Not Recovered/Not Resolved]
  - Malnutrition [Not Recovered/Not Resolved]
  - Asthenia [Not Recovered/Not Resolved]
  - Transfusion reaction [Unknown]
  - Diarrhoea [Recovering/Resolving]
  - Constipation [Not Recovered/Not Resolved]
  - Nausea [Not Recovered/Not Resolved]
  - Gastritis [Unknown]
  - Fatigue [Not Recovered/Not Resolved]
  - Platelet count decreased [Unknown]

NARRATIVE: CASE EVENT DATE: 20170310
